FAERS Safety Report 7190729-7 (Version None)
Quarter: 2010Q4

REPORT INFORMATION
  Report Type: 
  Country: None (occurrence: None)
  Receive Date: 20101213
  Receipt Date: 20101206
  Transmission Date: 20110411
  Serious: Yes (Hospitalization)
  Sender: FDA-Public Use
  Company Number: ABX53-09-0584

PATIENT
  Age: 61 Year
  Sex: Female
  Weight: 53.9 kg

DRUGS (2)
  1. ABRAXANE [Suspect]
     Indication: OVARIAN CANCER
     Dosage: 100 MG/M2
     Dates: start: 20091020, end: 20091103
  2. LEUKINE [Suspect]
     Indication: OVARIAN CANCER
     Dosage: 250 MCG
     Dates: start: 20091104, end: 20091109

REACTIONS (9)
  - ASCITES [None]
  - CONDITION AGGRAVATED [None]
  - DYSPHAGIA [None]
  - LUNG NEOPLASM [None]
  - MALIGNANT NEOPLASM PROGRESSION [None]
  - NAUSEA [None]
  - OVARIAN EPITHELIAL CANCER [None]
  - PLEURAL EFFUSION [None]
  - VOMITING [None]
